FAERS Safety Report 20835075 (Version 1)
Quarter: 2022Q2

REPORT INFORMATION
  Report Type: Spontaneous
  Country: US (occurrence: None)
  Receive Date: 20220516
  Receipt Date: 20220516
  Transmission Date: 20220721
  Serious: No
  Sender: FDA-Public Use
  Company Number: None

PATIENT
  Age: 40 Year
  Sex: Female
  Weight: 99.45 kg

DRUGS (1)
  1. NICODERM CQ [Suspect]
     Active Substance: NICOTINE
     Indication: Smoking cessation therapy
     Dosage: FREQUENCY : DAILY;?
     Route: 061
     Dates: start: 20220421

REACTIONS (2)
  - Application site bruise [None]
  - Application site mass [None]

NARRATIVE: CASE EVENT DATE: 20220512
